FAERS Safety Report 17893054 (Version 1)
Quarter: 2020Q2

REPORT INFORMATION
  Report Type: Spontaneous
  Country: CN (occurrence: CN)
  Receive Date: 20200613
  Receipt Date: 20200613
  Transmission Date: 20200714
  Serious: Yes (Other)
  Sender: FDA-Public Use
  Company Number: NVSC2020CN164892

PATIENT
  Age: 30 Year
  Sex: Male

DRUGS (3)
  1. IMATINIB. [Suspect]
     Active Substance: IMATINIB MESYLATE
     Dosage: 600 MG (6 TABLETS A DAY)
     Route: 048
     Dates: end: 20191130
  2. NILOTINIB [Suspect]
     Active Substance: NILOTINIB
     Indication: CHRONIC MYELOID LEUKAEMIA
     Dosage: 600 MG, UNKNOWN
     Route: 048
     Dates: start: 20191201, end: 202003
  3. IMATINIB. [Suspect]
     Active Substance: IMATINIB MESYLATE
     Indication: CHRONIC MYELOID LEUKAEMIA
     Dosage: 400 MG, UNKNOWN (4 TABLETS A DAY)
     Route: 048
     Dates: start: 20180820

REACTIONS (2)
  - Cytogenetic abnormality [Unknown]
  - Philadelphia chromosome positive [Unknown]
